FAERS Safety Report 4895888-4 (Version None)
Quarter: 2006Q1

REPORT INFORMATION
  Report Type: 
  Country: None (occurrence: None)
  Receive Date: 20060125
  Receipt Date: 20060112
  Transmission Date: 20060701
  Serious: Yes (Hospitalization)
  Sender: FDA-Public Use
  Company Number: 2006008577

PATIENT
  Age: 57 Year
  Sex: Female

DRUGS (6)
  1. DOXORUBICIN HCL [Suspect]
     Indication: ILL-DEFINED DISORDER
     Dosage: 130 MG (10 MG, INTRAVENOUS
     Route: 042
     Dates: start: 20050930
  2. CYCLOPHOSPHAMIDE [Suspect]
     Indication: ILL-DEFINED DISORDER
     Dosage: 2.1 GRAM, INTRAVENOUS
     Route: 042
     Dates: start: 20050930
  3. VINDESINE SULFATE (VINDESINE SULFATE) [Suspect]
     Indication: ILL-DEFINED DISORDER
     Dosage: 3.5 MG, INTRAVENOUS
     Route: 042
     Dates: start: 20050930, end: 20051223
  4. METHOTREXATE [Suspect]
     Indication: ILL-DEFINED DISORDER
     Dosage: 15 MG, INTRA-
     Route: 039
     Dates: start: 20050930
  5. BLEOMYCIN SULFATE [Suspect]
     Indication: ILL-DEFINED DISORDER
     Dosage: 10 MG, INTRAVENOUS
     Route: 042
     Dates: start: 20050930
  6. MABTHERA (RITUXIMAB) [Suspect]
     Indication: ILL-DEFINED DISORDER
     Dosage: 660 MG, INTRAVENOUS
     Route: 042
     Dates: start: 20050929

REACTIONS (1)
  - DEAFNESS UNILATERAL [None]
